FAERS Safety Report 8448284-7 (Version None)
Quarter: 2012Q2

REPORT INFORMATION
  Report Type: 
  Country: None (occurrence: None)
  Receive Date: 20120530
  Receipt Date: 20120329
  Transmission Date: 20120825
  Serious: Yes (Hospitalization, Other)
  Sender: FDA-Public Use
  Company Number: 2012031438

PATIENT
  Age: 66 Year
  Sex: Male

DRUGS (2)
  1. PRIVIGEN [Suspect]
  2. PRIVIGEN [Suspect]
     Indication: ENCEPHALITIS VIRAL
     Dosage: INTRAVENOUS (NOT OTHERWISE SPECIFIED)
     Route: 042
     Dates: start: 20120207, end: 20120211

REACTIONS (3)
  - ANAEMIA [None]
  - DELAYED HAEMOLYTIC TRANSFUSION REACTION [None]
  - OFF LABEL USE [None]
